FAERS Safety Report 9070586 (Version 3)
Quarter: 2013Q1

REPORT INFORMATION
  Report Type: Spontaneous
  Country: US (occurrence: US)
  Receive Date: 20130206
  Receipt Date: 20130301
  Transmission Date: 20140127
  Serious: Yes (Hospitalization)
  Sender: FDA-Public Use
  Company Number: US-GILEAD-2013-0069145

PATIENT
  Sex: Female

DRUGS (4)
  1. LETAIRIS [Suspect]
     Indication: PULMONARY ARTERIAL HYPERTENSION
     Dosage: 10 MG, QD
     Route: 048
     Dates: start: 20100216
  2. REMODULIN [Concomitant]
  3. REVATIO [Concomitant]
  4. ADCIRCA [Concomitant]

REACTIONS (3)
  - Staphylococcal infection [Unknown]
  - Device related infection [Unknown]
  - Infection [Unknown]
